FAERS Safety Report 5379435-9 (Version None)
Quarter: 2007Q3

REPORT INFORMATION
  Report Type: 
  Country: None (occurrence: None)
  Receive Date: 20070703
  Receipt Date: 20070626
  Transmission Date: 20080115
  Serious: Yes (Hospitalization, Other)
  Sender: FDA-Public Use
  Company Number: 2007SP009356

PATIENT
  Age: 52 Year
  Sex: Female
  Weight: 54.8852 kg

DRUGS (3)
  1. EPTIFIBATIDE [Suspect]
     Indication: CORONARY ANGIOPLASTY
     Dates: start: 20070425
  2. ENOXAPARIN SODIUM [Suspect]
     Indication: CORONARY ANGIOPLASTY
     Dates: start: 20070401
  3. CLOPIDOGREL [Concomitant]

REACTIONS (3)
  - CHEST DISCOMFORT [None]
  - DYSPNOEA EXERTIONAL [None]
  - THROMBOSIS IN DEVICE [None]
